FAERS Safety Report 7610777-X (Version None)
Quarter: 2011Q3

REPORT INFORMATION
  Report Type: 
  Country: None (occurrence: None)
  Receive Date: 20110707
  Receipt Date: 20110622
  Transmission Date: 20111222
  Serious: Yes (Life-Threatening, Hospitalization)
  Sender: FDA-Public Use
  Company Number: 2011MA007926

PATIENT
  Age: 41 Year
  Sex: Male

DRUGS (1)
  1. FLUOXETINE [Suspect]
     Dosage: 20 MG; QD;

REACTIONS (1)
  - STEVENS-JOHNSON SYNDROME [None]
